FAERS Safety Report 6007040-X (Version None)
Quarter: 2008Q4

REPORT INFORMATION
  Report Type: 
  Country: None (occurrence: None)
  Receive Date: 20081217
  Receipt Date: 20071218
  Transmission Date: 20090506
  Serious: No
  Sender: FDA-Public Use
  Company Number: US-AMGEN-KDL255888

PATIENT
  Sex: Male
  Weight: 77.2 kg

DRUGS (4)
  1. ENBREL [Suspect]
     Indication: PSORIATIC ARTHROPATHY
     Route: 058
     Dates: start: 20071017
  2. ENBREL [Suspect]
     Indication: PSORIASIS
  3. CLOBETASOL PROPIONATE [Concomitant]
     Dates: start: 20070904, end: 20071114
  4. CLOBETASOL PROPIONATE [Concomitant]

REACTIONS (2)
  - INJECTION SITE ERYTHEMA [None]
  - INJECTION SITE HAEMATOMA [None]
